FAERS Safety Report 18397315 (Version 2)
Quarter: 2020Q4

REPORT INFORMATION
  Report Type: Spontaneous
  Country: JP (occurrence: JP)
  Receive Date: 20201019
  Receipt Date: 20201029
  Transmission Date: 20210114
  Serious: Yes (Other)
  Sender: FDA-Public Use
  Company Number: JP-GLAXOSMITHKLINE-JP2020JPN174724

PATIENT
  Age: 78 Year
  Sex: Male
  Weight: 47.3 kg

DRUGS (7)
  1. BOTOX [Suspect]
     Active Substance: ONABOTULINUMTOXINA
     Indication: HYPERTONIC BLADDER
     Dosage: 100 IU
     Route: 030
     Dates: start: 20200819
  2. URIEF [Concomitant]
     Active Substance: SILODOSIN
     Indication: BENIGN PROSTATIC HYPERPLASIA
     Dosage: 8 MG, 1D
     Route: 048
     Dates: start: 20160118
  3. VESICARE [Concomitant]
     Active Substance: SOLIFENACIN SUCCINATE
     Indication: HYPERTONIC BLADDER
     Dosage: 5 MG, 1D
     Route: 048
     Dates: start: 20180124, end: 20180328
  4. BEOVA [Concomitant]
     Dosage: 50 UG, 1D
     Route: 048
     Dates: start: 20190911, end: 20200610
  5. AVOLVE [Suspect]
     Active Substance: DUTASTERIDE
     Indication: BENIGN PROSTATIC HYPERPLASIA
     Dosage: 0.5 MG, 1D
     Route: 048
     Dates: start: 20180912, end: 20200610
  6. BETANIS TABLETS [Concomitant]
     Indication: HYPERTONIC BLADDER
     Dosage: 50 MG, 1D
     Route: 048
     Dates: start: 20160118, end: 20170501
  7. HACHIMIJIOGAN [Concomitant]
     Active Substance: HERBALS
     Indication: BENIGN PROSTATIC HYPERPLASIA
     Dosage: 7.5 G, 1D
     Route: 048
     Dates: start: 20180328

REACTIONS (1)
  - Urinary retention [Recovered/Resolved]

NARRATIVE: CASE EVENT DATE: 20200820
